FAERS Safety Report 24765331 (Version 1)
Quarter: 2024Q4

REPORT INFORMATION
  Report Type: Spontaneous
  Country: US (occurrence: None)
  Receive Date: 20241219
  Receipt Date: 20241219
  Transmission Date: 20250115
  Serious: Yes (Hospitalization)
  Sender: Public
  Company Number: None

PATIENT
  Age: 72 Year
  Sex: Male
  Weight: 108 kg

DRUGS (2)
  1. SEMAGLUTIDE [Suspect]
     Active Substance: SEMAGLUTIDE
     Indication: Diabetes mellitus
     Dosage: 0.50 MG QWEEK SUBCUTANEOUS?
     Route: 058
     Dates: start: 20230809, end: 20240618
  2. METFORMIN HYDROCHLORIDE [Suspect]
     Active Substance: METFORMIN HYDROCHLORIDE
     Indication: Diabetes mellitus
     Dosage: 500.00 MG TWICE A DAY ORAL
     Route: 048

REACTIONS (10)
  - Diarrhoea [None]
  - Fatigue [None]
  - Hypomagnesaemia [None]
  - Renal injury [None]
  - Atrial fibrillation [None]
  - Dyspnoea [None]
  - Vomiting [None]
  - Pain [None]
  - Atrial fibrillation [None]
  - Pseudomonas test positive [None]

NARRATIVE: CASE EVENT DATE: 20240611
